FAERS Safety Report 7756216-X (Version None)
Quarter: 2011Q3

REPORT INFORMATION
  Report Type: 
  Country: None (occurrence: None)
  Receive Date: 20110916
  Receipt Date: 20110909
  Transmission Date: 20111222
  Serious: Yes (Death)
  Sender: FDA-Public Use
  Company Number: FR-B.I. PHARMACEUTICALS,INC./RIDGEFIELD-2011-DE-05087GD

PATIENT

DRUGS (1)
  1. DABIGATRAN ETEXILATE [Suspect]
     Route: 048

REACTIONS (1)
  - INTESTINAL ISCHAEMIA [None]
